FAERS Safety Report 5572711-6 (Version None)
Quarter: 2007Q4

REPORT INFORMATION
  Report Type: 
  Country: None (occurrence: None)
  Receive Date: 20071130
  Receipt Date: 20070508
  Transmission Date: 20080405
  Serious: Yes (Hospitalization, Other)
  Sender: FDA-Public Use
  Company Number: WAES 0608USA06331

PATIENT
  Age: 75 Year
  Sex: Female
  Weight: 66.2252 kg

DRUGS (6)
  1. FOSAMAX [Suspect]
     Indication: OSTEOPOROSIS
     Dosage: 35 MG/WKY/PO
     Route: 048
     Dates: start: 19980101
  2. EVISTA [Concomitant]
  3. NORVASC [Concomitant]
  4. PRINIVIL [Concomitant]
  5. PROTONIX [Concomitant]
  6. SYNTHROID [Concomitant]

REACTIONS (1)
  - OSTEOMYELITIS [None]
